FAERS Safety Report 13068530 (Version 1)
Quarter: 2016Q4

REPORT INFORMATION
  Report Type: Spontaneous
  Country: CN (occurrence: CN)
  Receive Date: 20161228
  Receipt Date: 20161228
  Transmission Date: 20170207
  Serious: Yes (Other)
  Sender: FDA-Public Use
  Company Number: CN-PFIZER INC-2016599705

PATIENT
  Age: 67 Year
  Sex: Female

DRUGS (1)
  1. CORDARONE [Suspect]
     Active Substance: AMIODARONE HYDROCHLORIDE
     Indication: ATRIAL FIBRILLATION
     Dosage: 0.2 G, 3X/DAY
     Route: 048
     Dates: start: 20160225, end: 20160226

REACTIONS (1)
  - Electrocardiogram RR interval prolonged [Unknown]

NARRATIVE: CASE EVENT DATE: 20160226
